FAERS Safety Report 5905425-0 (Version None)
Quarter: 2008Q4

REPORT INFORMATION
  Report Type: 
  Country: None (occurrence: None)
  Receive Date: 20081002
  Receipt Date: 20080919
  Transmission Date: 20090506
  Serious: Yes (Hospitalization)
  Sender: FDA-Public Use
  Company Number: US-RB-004648-08

PATIENT
  Sex: Male

DRUGS (1)
  1. MUCINEX [Suspect]

REACTIONS (1)
  - HOSPITALISATION [None]
